FAERS Safety Report 25684256 (Version 1)
Quarter: 2025Q3

REPORT INFORMATION
  Report Type: Spontaneous
  Country: TR (occurrence: TR)
  Receive Date: 20250815
  Receipt Date: 20250815
  Transmission Date: 20251020
  Serious: Yes (Other)
  Sender: MERCK SHARP & DOHME LLC
  Company Number: TR-GILEAD-2019-0391245

PATIENT
  Age: 3 Year
  Sex: Female

DRUGS (15)
  1. CASPOFUNGIN ACETATE [Suspect]
     Active Substance: CASPOFUNGIN ACETATE
     Indication: Candida infection
     Route: 065
  2. VINCRISTINE [Concomitant]
     Active Substance: VINCRISTINE
  3. DAUNORUBICIN [Concomitant]
     Active Substance: DAUNORUBICIN
  4. ASPARAGINASE [Concomitant]
     Active Substance: ASPARAGINASE
  5. METHOTREXATE [Concomitant]
     Active Substance: METHOTREXATE
  6. CEFOPERAZONE SODIUM\SULBACTAM [Concomitant]
     Active Substance: CEFOPERAZONE SODIUM\SULBACTAM
  7. AMIKACIN [Concomitant]
     Active Substance: AMIKACIN
  8. IMIPENEM AND CILASTATIN [Concomitant]
     Active Substance: CILASTATIN SODIUM\IMIPENEM
  9. DIGITALIS [Concomitant]
     Active Substance: DIGITALIS
  10. GRANULOCYTE COLONY-STIMULATING FACTOR NOS [Concomitant]
     Active Substance: GRANULOCYTE COLONY-STIMULATING FACTOR NOS
  11. POSACONAZOLE [Concomitant]
     Active Substance: POSACONAZOLE
     Dosage: 15 MG/KG, QD
  12. POSACONAZOLE [Concomitant]
     Active Substance: POSACONAZOLE
  13. VORICONAZOLE [Suspect]
     Active Substance: VORICONAZOLE
     Route: 065
  14. PREDNISOLONE [Concomitant]
     Active Substance: PREDNISOLONE
  15. AMBISOME [Suspect]
     Active Substance: AMPHOTERICIN B
     Indication: Candida infection
     Route: 065

REACTIONS (1)
  - Drug ineffective [Recovered/Resolved]
